FAERS Safety Report 14114187 (Version 1)
Quarter: 2017Q4

REPORT INFORMATION
  Report Type: Spontaneous
  Country: GB (occurrence: GB)
  Receive Date: 20171023
  Receipt Date: 20171023
  Transmission Date: 20180321
  Serious: Yes (Hospitalization)
  Sender: FDA-Public Use
  Company Number: PHFR2017GB008262

PATIENT
  Sex: Female

DRUGS (1)
  1. CITALOPRAM [Suspect]
     Active Substance: CITALOPRAM HYDROBROMIDE
     Indication: PRODUCT USED FOR UNKNOWN INDICATION
     Route: 065

REACTIONS (8)
  - Dyspnoea [Unknown]
  - Diarrhoea [Unknown]
  - Blood pressure decreased [Unknown]
  - Haematochezia [Unknown]
  - Tremor [Unknown]
  - Extrasystoles [Unknown]
  - Pallor [Unknown]
  - Hyperhidrosis [Unknown]
